FAERS Safety Report 8381279-0 (Version None)
Quarter: 2012Q2

REPORT INFORMATION
  Report Type: 
  Country: None (occurrence: None)
  Receive Date: 20120523
  Receipt Date: 20120517
  Transmission Date: 20120825
  Serious: Yes (Other)
  Sender: FDA-Public Use
  Company Number: US-ELI_LILLY_AND_COMPANY-US201205006597

PATIENT
  Sex: Female

DRUGS (4)
  1. BYETTA [Concomitant]
     Dosage: 10 UG, BID
     Route: 058
     Dates: start: 20120401
  2. METFORMIN HCL [Concomitant]
     Indication: DIABETES MELLITUS
     Dosage: UNK
  3. BYDUREON [Suspect]
     Indication: TYPE 2 DIABETES MELLITUS
     Dosage: 2 MG, WEEKLY (1/W)
     Route: 058
     Dates: start: 20120401, end: 20120401
  4. BYETTA [Concomitant]
     Indication: DIABETES MELLITUS
     Dosage: 10 UG, BID
     Route: 058
     Dates: start: 20070401, end: 20120401

REACTIONS (3)
  - SYNCOPE [None]
  - DIZZINESS [None]
  - INJECTION SITE NODULE [None]
